FAERS Safety Report 14692717 (Version 1)
Quarter: 2018Q1

REPORT INFORMATION
  Report Type: Spontaneous
  Country: US (occurrence: US)
  Receive Date: 20180329
  Receipt Date: 20180329
  Transmission Date: 20180509
  Serious: Yes (Death, Hospitalization, Other)
  Sender: FDA-Public Use
  Company Number: US-UNICHEM PHARMACEUTICALS (USA) INC-UCM201612-000294

PATIENT
  Age: 53 Year
  Sex: Male

DRUGS (4)
  1. TRAZODONE [Concomitant]
     Active Substance: TRAZODONE HYDROCHLORIDE
  2. RISPERIDONE. [Concomitant]
     Active Substance: RISPERIDONE
  3. DIVALPROEX SODIUM. [Concomitant]
     Active Substance: DIVALPROEX SODIUM
  4. AMLODIPINE [Suspect]
     Active Substance: AMLODIPINE BESYLATE

REACTIONS (12)
  - Acute kidney injury [Not Recovered/Not Resolved]
  - Bradycardia [Not Recovered/Not Resolved]
  - Hypotension [Recovering/Resolving]
  - Brain herniation [Not Recovered/Not Resolved]
  - Completed suicide [Fatal]
  - Hyperhidrosis [Not Recovered/Not Resolved]
  - Brain injury [Not Recovered/Not Resolved]
  - Intentional overdose [Fatal]
  - Mental disorder [Not Recovered/Not Resolved]
  - Death [Fatal]
  - Cardiac arrest [Recovering/Resolving]
  - Pulseless electrical activity [Not Recovered/Not Resolved]
